FAERS Safety Report 5781277-7 (Version None)
Quarter: 2008Q2

REPORT INFORMATION
  Report Type: 
  Country: None (occurrence: None)
  Receive Date: 20080623
  Receipt Date: 20080521
  Transmission Date: 20081010
  Serious: No
  Sender: FDA-Public Use
  Company Number: US-BAYER-200810004NA

PATIENT
  Age: 24 Year
  Sex: Female
  Weight: 53 kg

DRUGS (1)
  1. YAZ [Suspect]
     Indication: CONTRACEPTION
     Route: 048
     Dates: start: 20071001

REACTIONS (3)
  - DRUG DOSE OMISSION [None]
  - GENITAL HAEMORRHAGE [None]
  - WITHDRAWAL BLEEDING IRREGULAR [None]
